FAERS Safety Report 10094624 (Version 1)
Quarter: 2014Q2

REPORT INFORMATION
  Report Type: Spontaneous
  Country: US (occurrence: US)
  Receive Date: 20140422
  Receipt Date: 20140422
  Transmission Date: 20141212
  Serious: No
  Sender: FDA-Public Use
  Company Number: US-PFIZER INC-2014110073

PATIENT
  Sex: Female

DRUGS (11)
  1. LYRICA [Suspect]
     Dosage: UNK
  2. NEURONTIN [Suspect]
     Dosage: UNK
  3. RELPAX [Suspect]
     Dosage: UNK
  4. DICLOFENAC SODIUM [Suspect]
     Dosage: UNK
  5. CELEXA [Suspect]
     Dosage: UNK
  6. IMITREX [Suspect]
     Dosage: UNK
  7. KEPPRA [Suspect]
     Dosage: UNK
  8. LEXAPRO [Suspect]
     Dosage: UNK
  9. REGLAN [Suspect]
     Dosage: UNK
  10. RESTORIL [Suspect]
     Dosage: UNK
  11. SYNTHROID [Suspect]
     Dosage: UNK

REACTIONS (1)
  - Drug hypersensitivity [Unknown]
